FAERS Safety Report 8094416-2 (Version None)
Quarter: 2012Q1

REPORT INFORMATION
  Report Type: 
  Country: None (occurrence: None)
  Receive Date: 20120130
  Receipt Date: 20120120
  Transmission Date: 20120608
  Serious: Yes (Hospitalization, Other)
  Sender: FDA-Public Use
  Company Number: US-BAYER-2011-045352

PATIENT
  Age: 31 Year
  Sex: Female
  Weight: 88.889 kg

DRUGS (8)
  1. YAZ [Suspect]
     Indication: CONTRACEPTION
     Dosage: UNK
     Dates: start: 20070101, end: 20100101
  2. PHENAZOPYRIDINE HCL TAB [Concomitant]
     Dosage: 200 MG, UNK
     Route: 048
     Dates: start: 20090508
  3. FERROUS SULFATE TAB [Concomitant]
     Dosage: 325 MG, UNK
     Route: 048
  4. TORPOLOL (INTERPRETED AS METOPROLOL / TOPROL) [Concomitant]
     Indication: HEART RATE IRREGULAR
     Dosage: UNK
     Dates: start: 20040101
  5. METOPROLOL TARTRATE [Concomitant]
     Dosage: 50 MG, UNK
     Route: 048
     Dates: start: 20090616
  6. CIPROFLOXACIN [Concomitant]
     Dosage: 500 MG, UNK
     Route: 048
     Dates: start: 20090508
  7. ALLEGRA [Concomitant]
     Dosage: UNK
     Route: 048
     Dates: start: 20090316
  8. PROMETHAZINE - CODEINE [CODEINE PHOSPHATE,PROMETHAZINE HYDROCHLORI [Concomitant]
     Dosage: UNK
     Route: 048
     Dates: start: 20090316

REACTIONS (12)
  - MENTAL DISORDER [None]
  - GALLBLADDER DISORDER [None]
  - PAIN [None]
  - ANHEDONIA [None]
  - INJURY [None]
  - MYOCARDIAL INFARCTION [None]
  - CEREBROVASCULAR ACCIDENT [None]
  - CHOLECYSTITIS CHRONIC [None]
  - PULMONARY EMBOLISM [None]
  - FEAR [None]
  - DEEP VEIN THROMBOSIS [None]
  - ANXIETY [None]
